FAERS Safety Report 8580470-8 (Version None)
Quarter: 2012Q3

REPORT INFORMATION
  Report Type: 
  Country: None (occurrence: None)
  Receive Date: 20120808
  Receipt Date: 20120730
  Transmission Date: 20120928
  Serious: Yes (Hospitalization)
  Sender: FDA-Public Use
  Company Number: JP-VERTEX PHARMACEUTICALS INC.-AE-2012-011641

PATIENT
  Age: 65 Year
  Sex: Male

DRUGS (8)
  1. RIBAVIRIN [Concomitant]
     Route: 048
     Dates: start: 20120214
  2. PEGINTERFERON ALFA-2B [Concomitant]
     Indication: HEPATITIS C
     Route: 058
     Dates: start: 20120207
  3. RIBAVIRIN [Concomitant]
     Route: 048
     Dates: start: 20120208, end: 20120213
  4. ANPLAG [Concomitant]
     Route: 048
     Dates: start: 20120721
  5. PROCYLIN [Concomitant]
     Route: 048
     Dates: start: 20120721
  6. LANSOPRAZOLE [Concomitant]
     Route: 048
     Dates: start: 20120207
  7. TELAVIC (TELAPREVIR) [Suspect]
     Indication: HEPATITIS C
     Route: 048
     Dates: start: 20120207, end: 20120212
  8. PREDNISOLONE [Concomitant]
     Route: 048
     Dates: start: 20120207, end: 20120207

REACTIONS (1)
  - ARTERIAL THROMBOSIS LIMB [None]
